FAERS Safety Report 14144978 (Version 4)
Quarter: 2019Q2

REPORT INFORMATION
  Report Type: Report from Study
  Country: FR (occurrence: FR)
  Receive Date: 20171031
  Receipt Date: 20190418
  Transmission Date: 20190711
  Serious: Yes (Other)
  Sender: FDA-Public Use
  Company Number: FR-VIFOR (INTERNATIONAL) INC.-VIT-2017-11776

PATIENT
  Sex: Female
  Weight: 74 kg

DRUGS (6)
  1. MIMPARA [Concomitant]
     Active Substance: CINACALCET HYDROCHLORIDE
     Indication: HYPERPARATHYROIDISM
     Dates: start: 20140101
  2. VELPHORO [Suspect]
     Active Substance: FERRIC OXYHYDROXIDE
     Indication: HYPERPHOSPHATAEMIA
     Route: 048
     Dates: start: 20170712
  3. PREVISCAN [Concomitant]
     Indication: ARRHYTHMIA
     Dates: start: 20140201, end: 20170922
  4. ROCALTROL [Concomitant]
     Active Substance: CALCITRIOL
     Indication: HYPERPARATHYROIDISM
     Dates: start: 20140101
  5. MIRCERA [Concomitant]
     Active Substance: METHOXY POLYETHYLENE GLYCOL-EPOETIN BETA
     Indication: ANAEMIA
     Dates: start: 20140301
  6. PREVISCAN [Concomitant]
     Indication: ATRIAL FIBRILLATION
     Dates: start: 20130202

REACTIONS (2)
  - Gastrointestinal haemorrhage [Unknown]
  - Megacolon [Unknown]

NARRATIVE: CASE EVENT DATE: 20170922
